FAERS Safety Report 6296003-5 (Version None)
Quarter: 2009Q3

REPORT INFORMATION
  Report Type: 
  Country: None (occurrence: None)
  Receive Date: 20090804
  Receipt Date: 20090728
  Transmission Date: 20100115
  Serious: Yes (Hospitalization, Other)
  Sender: FDA-Public Use
  Company Number: PHHO2009JP03293

PATIENT
  Sex: Female
  Weight: 41 kg

DRUGS (23)
  1. BLINDED NO TREATMENT RECEIVED NOMED [Suspect]
     Indication: PANCREATIC NEUROENDOCRINE TUMOUR
     Dosage: DOUBLE BLIND
     Route: 048
     Dates: start: 20080603
  2. BLINDED PLACEBO COMP-PLA+ [Suspect]
     Indication: PANCREATIC NEUROENDOCRINE TUMOUR
     Dosage: DOUBLE BLIND
     Route: 048
     Dates: start: 20080603
  3. BLINDED RAD 666 RAD+TAB+CMAS [Suspect]
     Indication: PANCREATIC NEUROENDOCRINE TUMOUR
     Dosage: DOUBLE BLIND
     Route: 048
     Dates: start: 20080603
  4. RAD001 [Suspect]
     Indication: PANCREATIC NEUROENDOCRINE TUMOUR
     Dosage: 10 MG
     Route: 048
     Dates: start: 20080808, end: 20080813
  5. RAD001 [Suspect]
     Dosage: 10 MG
     Route: 048
     Dates: start: 20080821, end: 20090227
  6. RAD001 [Suspect]
     Dosage: 10 MG
     Route: 048
     Dates: start: 20090306, end: 20090622
  7. RAD001 [Suspect]
     Dosage: 10 MG
     Route: 048
     Dates: start: 20090707
  8. PANCREATIN [Concomitant]
     Indication: PANCREATITIS CHRONIC
  9. URSO 250 [Concomitant]
     Indication: HEPATIC FUNCTION ABNORMAL
  10. MOHRUS [Concomitant]
     Indication: BACK PAIN
  11. ALOSENN [Concomitant]
     Indication: CONSTIPATION
  12. PARIET [Concomitant]
     Indication: REFLUX OESOPHAGITIS
  13. DOGMATYL [Concomitant]
  14. ALESION [Concomitant]
     Indication: RHINITIS ALLERGIC
  15. INTAL [Concomitant]
     Indication: RHINITIS ALLERGIC
  16. LENDORMIN [Concomitant]
     Indication: INSOMNIA
  17. ALLEGRA [Concomitant]
     Indication: RHINITIS ALLERGIC
  18. GARASONE [Concomitant]
     Indication: RASH
  19. EURAX [Concomitant]
     Indication: RASH
  20. LAMISIL [Concomitant]
     Indication: ONYCHOMYCOSIS
  21. CRAVIT [Concomitant]
     Indication: PYREXIA
  22. CALONAL [Concomitant]
     Indication: HEADACHE
  23. LOXONIN [Concomitant]
     Indication: PYREXIA

REACTIONS (12)
  - CARDIAC FUNCTION TEST ABNORMAL [None]
  - CARDIOMYOPATHY [None]
  - CATHETERISATION CARDIAC [None]
  - CHILLS [None]
  - CHOLANGITIS [None]
  - DECREASED APPETITE [None]
  - GASTROINTESTINAL HYPOMOTILITY [None]
  - HEADACHE [None]
  - INFLAMMATION [None]
  - MALIGNANT NEOPLASM PROGRESSION [None]
  - OROPHARYNGEAL PAIN [None]
  - PYREXIA [None]
